FAERS Safety Report 8716474 (Version 2)
Quarter: 2013Q2

REPORT INFORMATION
  Report Type: Spontaneous
  Country: US (occurrence: US)
  Receive Date: 20120810
  Receipt Date: 20130521
  Transmission Date: 20140414
  Serious: No
  Sender: FDA-Public Use
  Company Number: US-009507513-1208USA001711

PATIENT
  Age: 35 Year
  Sex: Female

DRUGS (2)
  1. ISENTRESS [Suspect]
     Indication: HIV INFECTION
     Dosage: UNK
     Route: 048
  2. SINGULAIR [Suspect]
     Indication: HYPERSENSITIVITY
     Dosage: UNK
     Route: 048

REACTIONS (1)
  - Hypokalaemia [Recovered/Resolved]
